FAERS Safety Report 9933124 (Version 3)
Quarter: 2015Q1

REPORT INFORMATION
  Report Type: Spontaneous
  Country: US (occurrence: US)
  Receive Date: 20140228
  Receipt Date: 20150119
  Transmission Date: 20150721
  Serious: Yes (Hospitalization, Other)
  Sender: FDA-Public Use
  Company Number: US-GLAXOSMITHKLINE-A1050034A

PATIENT
  Sex: Female

DRUGS (4)
  1. ADVAIR HFA [Suspect]
     Active Substance: FLUTICASONE PROPIONATE\SALMETEROL XINAFOATE
     Indication: ASTHMA
  2. VENTOLIN [Suspect]
     Active Substance: ALBUTEROL SULFATE
     Indication: RESPIRATORY DISORDER
     Dosage: 90 MCG UNKNOWN DOSING
     Route: 065
     Dates: start: 20130402
  3. ADVAIR HFA [Suspect]
     Active Substance: FLUTICASONE PROPIONATE\SALMETEROL XINAFOATE
     Indication: RESPIRATORY DISORDER
     Dosage: UNK, U
     Route: 065
     Dates: start: 20100930
  4. LAMICTAL [Suspect]
     Active Substance: LAMOTRIGINE
     Indication: NERVOUS SYSTEM DISORDER
     Dosage: 25 MG, 100 MG
     Route: 065
     Dates: start: 20100930

REACTIONS (4)
  - Malaise [Unknown]
  - Hospitalisation [Unknown]
  - Dyspnoea [Unknown]
  - Renal disorder [Unknown]
